FAERS Safety Report 16978054 (Version 4)
Quarter: 2020Q1

REPORT INFORMATION
  Report Type: Spontaneous
  Country: DE (occurrence: DE)
  Receive Date: 20191031
  Receipt Date: 20200130
  Transmission Date: 20200409
  Serious: Yes (Death, Other)
  Sender: FDA-Public Use
  Company Number: DE-009507513-1910DEU016157

PATIENT
  Age: 53 Year
  Sex: Male
  Weight: 133 kg

DRUGS (5)
  1. VANCOMYCIN [Concomitant]
     Active Substance: VANCOMYCIN
     Indication: ANTIBIOTIC THERAPY
     Dosage: UNK
     Route: 065
     Dates: end: 20190624
  2. CUBICIN [Suspect]
     Active Substance: DAPTOMYCIN
     Indication: INTERVERTEBRAL DISCITIS
  3. MEROPENEM. [Concomitant]
     Active Substance: MEROPENEM
     Indication: ANTIBIOTIC THERAPY
     Route: 065
     Dates: end: 20190624
  4. CUBICIN [Suspect]
     Active Substance: DAPTOMYCIN
     Indication: STAPHYLOCOCCAL INFECTION
     Dosage: 1000 MG (10 MG/KG ADJUSTED KG)
     Route: 042
     Dates: start: 20190624, end: 20190626
  5. RIFAMPIN. [Concomitant]
     Active Substance: RIFAMPIN
     Indication: ANTIBIOTIC THERAPY
     Route: 065
     Dates: end: 20190623

REACTIONS (4)
  - Blister [Fatal]
  - Sepsis [Fatal]
  - Rash [Fatal]
  - Septic shock [Fatal]

NARRATIVE: CASE EVENT DATE: 2019
